FAERS Safety Report 10043633 (Version 2)
Quarter: 2014Q2

REPORT INFORMATION
  Report Type: Spontaneous
  Country: US (occurrence: US)
  Receive Date: 20140328
  Receipt Date: 20140414
  Transmission Date: 20141212
  Serious: Yes (Other)
  Sender: FDA-Public Use
  Company Number: US-JNJFOC-20140313394

PATIENT
  Age: 73 Year
  Sex: Female
  Weight: 50.8 kg

DRUGS (17)
  1. XARELTO [Suspect]
     Indication: CEREBROVASCULAR ACCIDENT PROPHYLAXIS
     Dosage: STRENGTH: 20 MG
     Route: 048
     Dates: start: 201402
  2. XARELTO [Suspect]
     Indication: ATRIAL FIBRILLATION
     Dosage: STRENGTH: 20 MG
     Route: 048
     Dates: start: 201402
  3. ASPIRIN [Suspect]
     Indication: PRODUCT USED FOR UNKNOWN INDICATION
     Route: 065
  4. VALIUM [Concomitant]
     Indication: ANXIETY
     Route: 048
  5. ZOLPIDEM [Concomitant]
     Indication: SLEEP DISORDER
     Route: 048
  6. HYDROCODONE ACETAMINOPHEN [Concomitant]
     Indication: PAIN
     Dosage: 5/500 MG
     Route: 048
  7. AMLODIPINE [Concomitant]
     Route: 048
     Dates: start: 2013
  8. CLONIDINE [Concomitant]
     Indication: HYPERTENSION
     Route: 048
  9. HYDRALAZINE [Concomitant]
     Route: 048
  10. PROZAC [Concomitant]
     Indication: DEPRESSION
     Route: 048
  11. LISINOPRIL HYDROCHLOROTHIAZIDE [Concomitant]
     Indication: BLOOD PRESSURE
     Dosage: 20-25 MG
     Route: 048
  12. OXYBUTYNIN [Concomitant]
     Indication: MICTURITION URGENCY
     Route: 048
  13. SIMVASTATIN [Concomitant]
     Route: 048
  14. ALBUTEROL [Concomitant]
     Indication: DYSPNOEA
     Dosage: 2 PUFFS
     Route: 048
     Dates: start: 2013
  15. ALBUTEROL [Concomitant]
     Indication: WHEEZING
     Dosage: 2 PUFFS
     Route: 048
     Dates: start: 2013
  16. VITAMIN D [Concomitant]
     Indication: BONE DENSITY ABNORMAL
     Route: 048
  17. PLAVIX [Concomitant]
     Route: 065

REACTIONS (2)
  - Chromaturia [Not Recovered/Not Resolved]
  - Headache [Not Recovered/Not Resolved]
